FAERS Safety Report 6919959-3 (Version None)
Quarter: 2010Q3

REPORT INFORMATION
  Report Type: 
  Country: None (occurrence: None)
  Receive Date: 20100811
  Receipt Date: 20100730
  Transmission Date: 20110219
  Serious: Yes (Hospitalization)
  Sender: FDA-Public Use
  Company Number: PHHY2010US26419

PATIENT
  Sex: Female
  Weight: 52.55 kg

DRUGS (8)
  1. EXJADE [Suspect]
     Indication: SIDEROBLASTIC ANAEMIA
     Dosage: UNK
     Route: 048
     Dates: start: 20090111
  2. EXJADE [Suspect]
     Indication: IRON METABOLISM DISORDER
     Dosage: 1000 MG, DAILY
     Route: 048
     Dates: start: 20091026, end: 20100216
  3. EXJADE [Suspect]
     Dosage: 500 MG DAILY
     Route: 048
  4. EXJADE [Suspect]
     Dosage: UNK
     Route: 048
     Dates: end: 20100520
  5. FOLIC ACID [Concomitant]
  6. TIMOPTIC [Concomitant]
  7. FOSAMAX [Concomitant]
  8. VITAMIN B6 [Concomitant]

REACTIONS (4)
  - BACK PAIN [None]
  - DIARRHOEA [None]
  - FALL [None]
  - NAUSEA [None]
